FAERS Safety Report 10194058 (Version 1)
Quarter: 2014Q2

REPORT INFORMATION
  Report Type: Spontaneous
  Country: US (occurrence: US)
  Receive Date: 20140524
  Receipt Date: 20140524
  Transmission Date: 20141212
  Serious: No
  Sender: FDA-Public Use
  Company Number: US-SANOFI-AVENTIS-2013SA055783

PATIENT
  Sex: 0

DRUGS (3)
  1. LANTUS [Suspect]
     Route: 051
  2. LANTUS [Suspect]
     Route: 051
  3. LANTUS [Suspect]
     Route: 051

REACTIONS (6)
  - Hypoglycaemia [Not Recovered/Not Resolved]
  - Abdominal distension [Not Recovered/Not Resolved]
  - Constipation [Not Recovered/Not Resolved]
  - Nausea [Not Recovered/Not Resolved]
  - Headache [Not Recovered/Not Resolved]
  - Feeling abnormal [Not Recovered/Not Resolved]
